FAERS Safety Report 20074837 (Version 1)
Quarter: 2021Q4

REPORT INFORMATION
  Report Type: Spontaneous
  Country: DE (occurrence: DE)
  Receive Date: 20211116
  Receipt Date: 20211116
  Transmission Date: 20220303
  Serious: Yes (Other)
  Sender: FDA-Public Use
  Company Number: DE-AMGEN-DEUSP2021126917

PATIENT
  Age: 46 Year
  Sex: Female

DRUGS (5)
  1. CINACALCET HYDROCHLORIDE [Suspect]
     Active Substance: CINACALCET HYDROCHLORIDE
     Indication: Hyperparathyroidism
     Dosage: UNK
  2. CINACALCET HYDROCHLORIDE [Suspect]
     Active Substance: CINACALCET HYDROCHLORIDE
     Indication: Hypercalcaemia
     Dosage: 150 MILLIGRAM
     Route: 065
  3. XGEVA [Suspect]
     Active Substance: DENOSUMAB
     Indication: Hypercalcaemia of malignancy
     Dosage: UNK
  4. XGEVA [Suspect]
     Active Substance: DENOSUMAB
     Indication: Off label use
     Dosage: UNK
  5. PEMBROLIZUMAB [Concomitant]
     Active Substance: PEMBROLIZUMAB
     Dosage: 200 MILLIGRAM, Q3WK
     Dates: start: 201709

REACTIONS (3)
  - Hypocalcaemia [Recovered/Resolved]
  - Metastases to lymph nodes [Recovering/Resolving]
  - Parathyroid tumour malignant [Unknown]
